FAERS Safety Report 11947989 (Version 2)
Quarter: 2017Q4

REPORT INFORMATION
  Report Type: Spontaneous
  Country: US (occurrence: US)
  Receive Date: 20160125
  Receipt Date: 20171027
  Transmission Date: 20180320
  Serious: Yes (Other)
  Sender: FDA-Public Use
  Company Number: US-AUROBINDO-AUR-APL-2016-00379

PATIENT
  Age: 45 Year
  Sex: Male

DRUGS (1)
  1. ZYPREXA [Suspect]
     Active Substance: OLANZAPINE
     Indication: BIPOLAR DISORDER

REACTIONS (4)
  - Hyperosmolar state [Recovered/Resolved]
  - Hyperkalaemia [Recovered/Resolved]
  - Hyperglycaemia [Recovered/Resolved]
  - Diabetic ketoacidosis [Recovered/Resolved]
